FAERS Safety Report 9222844 (Version 2)
Quarter: 2020Q1

REPORT INFORMATION
  Report Type: Report from Study
  Country: JP (occurrence: JP)
  Receive Date: 20130410
  Receipt Date: 20200221
  Transmission Date: 20200409
  Serious: Yes (Hospitalization)
  Sender: FDA-Public Use
  Company Number: JP-ALEXION PHARMACEUTICALS INC.-A201300650

PATIENT

DRUGS (6)
  1. SOLIRIS [Suspect]
     Active Substance: ECULIZUMAB
     Dosage: 900 MG, UNK
     Route: 042
  2. SOLIRIS [Suspect]
     Active Substance: ECULIZUMAB
     Indication: PAROXYSMAL NOCTURNAL HAEMOGLOBINURIA
     Dosage: 600 MG, UNK
     Route: 042
     Dates: start: 20100216
  3. NEORAL [Suspect]
     Active Substance: CYCLOSPORINE
     Dosage: 10 MG, TID
     Route: 065
     Dates: start: 20120508, end: 20120521
  4. WARFARIN                           /00014802/ [Suspect]
     Active Substance: WARFARIN
     Dosage: 0.75 MG, QD
     Route: 065
     Dates: start: 20120424, end: 20120430
  5. NEORAL [Suspect]
     Active Substance: CYCLOSPORINE
     Indication: PRODUCT USED FOR UNKNOWN INDICATION
     Dosage: 10 MG, BID
     Route: 065
     Dates: start: 20120228, end: 20120507
  6. WARFARIN                           /00014802/ [Suspect]
     Active Substance: WARFARIN
     Indication: PRODUCT USED FOR UNKNOWN INDICATION
     Dosage: 1 MG, QD
     Route: 065
     Dates: start: 20120321, end: 20120323

REACTIONS (4)
  - Pneumonia [Recovered/Resolved]
  - Intestinal obstruction [Recovered/Resolved]
  - Ileus [Recovering/Resolving]
  - Cardiac failure [Recovering/Resolving]

NARRATIVE: CASE EVENT DATE: 20120408
